FAERS Safety Report 7157065-6 (Version None)
Quarter: 2010Q4

REPORT INFORMATION
  Report Type: 
  Country: None (occurrence: None)
  Receive Date: 20101214
  Receipt Date: 20091229
  Transmission Date: 20110411
  Serious: No
  Sender: FDA-Public Use
  Company Number: US-ASTRAZENECA-2009SE33922

PATIENT
  Age: 23699 Day
  Sex: Female
  Weight: 66.2 kg

DRUGS (8)
  1. CRESTOR [Suspect]
     Indication: DYSLIPIDAEMIA
     Route: 048
     Dates: start: 20091029, end: 20091122
  2. CRESTOR [Suspect]
     Route: 048
     Dates: start: 20091201, end: 20091202
  3. BONIVA [Concomitant]
     Indication: OSTEOPENIA
  4. SINGULAIR [Concomitant]
     Indication: HYPERSENSITIVITY
  5. ASPIRIN [Concomitant]
     Indication: CARDIOVASCULAR EVENT PROPHYLAXIS
  6. MULTIVITAMIN [Concomitant]
     Indication: MACULAR DEGENERATION
  7. ZYRTEC [Concomitant]
     Indication: HYPERSENSITIVITY
  8. FISH OIL [Concomitant]
     Indication: CARDIOVASCULAR EVENT PROPHYLAXIS

REACTIONS (1)
  - GROIN PAIN [None]
